FAERS Safety Report 4366843-8 (Version None)
Quarter: 2004Q2

REPORT INFORMATION
  Report Type: 
  Country: None (occurrence: None)
  Receive Date: 20040528
  Receipt Date: 20040105
  Transmission Date: 20050107
  Serious: No
  Sender: FDA-Public Use
  Company Number: US-GLAXOSMITHKLINE-A0491302A

PATIENT
  Age: 73 Year
  Sex: Male

DRUGS (1)
  1. BACTROBAN [Suspect]
     Indication: WOUND INFECTION
     Dosage: 1APP TWICE PER DAY
     Route: 061
     Dates: start: 20031230

REACTIONS (6)
  - APPLICATION SITE BURNING [None]
  - APPLICATION SITE ERYTHEMA [None]
  - DRUG INEFFECTIVE [None]
  - HYPERSENSITIVITY [None]
  - OEDEMA PERIPHERAL [None]
  - PAIN [None]
